FAERS Safety Report 10735674 (Version 1)
Quarter: 2015Q1

REPORT INFORMATION
  Report Type: Spontaneous
  Country: CN (occurrence: CN)
  Receive Date: 20150126
  Receipt Date: 20150126
  Transmission Date: 20150721
  Serious: Yes (Other)
  Sender: FDA-Public Use
  Company Number: CN-PFIZER INC-2015030855

PATIENT
  Age: 2 Day
  Sex: Female
  Weight: 3 kg

DRUGS (1)
  1. VIAGRA [Suspect]
     Active Substance: SILDENAFIL CITRATE
     Indication: NEONATAL ASPIRATION
     Dosage: 1 MG, 3X/DAY
     Route: 048
     Dates: start: 20140812, end: 20140813

REACTIONS (3)
  - Blood pressure decreased [Recovering/Resolving]
  - Off label use [Unknown]
  - Oxygen saturation decreased [Recovering/Resolving]

NARRATIVE: CASE EVENT DATE: 20140813
